FAERS Safety Report 4334956-2 (Version None)
Quarter: 2004Q2

REPORT INFORMATION
  Report Type: 
  Country: None (occurrence: None)
  Receive Date: 20040405
  Receipt Date: 20040324
  Transmission Date: 20050107
  Serious: Yes (Hospitalization)
  Sender: FDA-Public Use
  Company Number: DSA_24020_2004

PATIENT
  Age: 70 Year
  Sex: Female
  Weight: 50.8 kg

DRUGS (9)
  1. ENALAPRIL MALEATE [Suspect]
     Indication: HYPERTENSION
     Dosage: 2.5 MG QD PO
     Route: 048
     Dates: start: 20031120, end: 20040206
  2. TICLOPIDINE HYDROCHLORIDE [Suspect]
     Indication: PROPHYLAXIS
     Dosage: 100 MG BID PO
     Route: 048
     Dates: start: 20031120, end: 20040204
  3. ASPIRIN [Suspect]
     Indication: PROPHYLAXIS
     Dosage: 81 MG BID PO
     Route: 048
     Dates: start: 20031120, end: 20040206
  4. RANITIDINE HYDROCHLORIDE [Suspect]
     Indication: GASTRITIS
     Dosage: 75 MG BID PO
     Route: 048
     Dates: start: 20031120, end: 20040206
  5. FERROUS CITRATE [Suspect]
     Indication: ANAEMIA
     Dosage: 50 MG BID PO
     Route: 048
     Dates: start: 20031120, end: 20040206
  6. SPIRONOLACTONE [Concomitant]
  7. FUROSEMIDE [Concomitant]
  8. BROTIZOLAM [Concomitant]
  9. ZOPICLONE [Concomitant]

REACTIONS (13)
  - ABDOMINAL PAIN UPPER [None]
  - ALANINE AMINOTRANSFERASE INCREASED [None]
  - ASPARTATE AMINOTRANSFERASE INCREASED [None]
  - BLOOD CREATININE DECREASED [None]
  - BLOOD LACTATE DEHYDROGENASE INCREASED [None]
  - BLOOD UREA INCREASED [None]
  - GAMMA-GLUTAMYLTRANSFERASE INCREASED [None]
  - HAEMATOCRIT DECREASED [None]
  - HAEMOGLOBIN DECREASED [None]
  - HEPATIC FUNCTION ABNORMAL [None]
  - PROTEIN TOTAL DECREASED [None]
  - RED BLOOD CELL COUNT DECREASED [None]
  - WHITE BLOOD CELL COUNT DECREASED [None]
